FAERS Safety Report 17793769 (Version 1)
Quarter: 2020Q2

REPORT INFORMATION
  Report Type: Spontaneous
  Country: US (occurrence: US)
  Receive Date: 20200515
  Receipt Date: 20200515
  Transmission Date: 20200714
  Serious: Yes (Other)
  Sender: FDA-Public Use
  Company Number: US-UPSHER-SMITH LABORATORIES, LLC-2020USL00266

PATIENT
  Sex: Female

DRUGS (1)
  1. AMIODARONE HYDROCHLORIDE. [Suspect]
     Active Substance: AMIODARONE HYDROCHLORIDE
     Indication: ATRIAL FIBRILLATION
     Dosage: UNK
     Route: 048
     Dates: start: 200910

REACTIONS (15)
  - Vitreous adhesions [Unknown]
  - Visual impairment [Unknown]
  - Toxicity to various agents [Unknown]
  - Intraocular lens implant [Unknown]
  - Retinal disorder [Unknown]
  - Cataract [Unknown]
  - Haemorrhage [Unknown]
  - Macular hole [Unknown]
  - Thrombosis [Unknown]
  - Glaucoma [Unknown]
  - Blindness [Unknown]
  - Arrhythmia [Unknown]
  - Fatigue [Unknown]
  - Unevaluable event [Unknown]
  - Off label use [Unknown]

NARRATIVE: CASE EVENT DATE: 200910
